FAERS Safety Report 4330959-2 (Version None)
Quarter: 2004Q1

REPORT INFORMATION
  Report Type: 
  Country: None (occurrence: None)
  Receive Date: 20040329
  Receipt Date: 20040317
  Transmission Date: 20041129
  Serious: Yes (Hospitalization)
  Sender: FDA-Public Use
  Company Number: 204846

PATIENT
  Age: 41 Year
  Sex: Female

DRUGS (7)
  1. HERCEPTIN [Suspect]
     Indication: BREAST CANCER
     Dosage: 392 MG, SINGLE, INTRAVENOUS
     Route: 042
     Dates: start: 20031210, end: 20031210
  2. HERCEPTIN [Suspect]
     Indication: BREAST CANCER
     Dosage: 392 MG, SINGLE, INTRAVENOUS
     Route: 042
     Dates: start: 20031219, end: 20040206
  3. DOCETAXEL (DOCETAXEL) [Suspect]
     Indication: BREAST CANCER
     Dosage: 198 MG,Q3W, INTRAVENOUS
     Route: 042
     Dates: start: 20031211, end: 20040206
  4. DECADRON [Concomitant]
  5. TAGAMET [Concomitant]
  6. BENADRYL [Concomitant]
  7. NEUOPOGEN (FILGRASTIM) [Concomitant]

REACTIONS (4)
  - FEBRILE NEUTROPENIA [None]
  - MUCOSAL INFLAMMATION [None]
  - MYALGIA [None]
  - PHARYNGOLARYNGEAL PAIN [None]
